FAERS Safety Report 25014767 (Version 2)
Quarter: 2025Q1

REPORT INFORMATION
  Report Type: Report from Study
  Country: US (occurrence: US)
  Receive Date: 20250226
  Receipt Date: 20250226
  Transmission Date: 20250409
  Serious: Yes (Hospitalization, Other)
  Sender: MERCK SHARP & DOHME LLC
  Company Number: US-009507513-2501USA009327

PATIENT
  Age: 77 Year
  Sex: Female

DRUGS (3)
  1. PEMBROLIZUMAB [Suspect]
     Active Substance: PEMBROLIZUMAB
     Indication: Breast cancer
     Dates: start: 20241004, end: 20241122
  2. CARBOPLATIN [Suspect]
     Active Substance: CARBOPLATIN
     Indication: Breast cancer
  3. TAXOL [Suspect]
     Active Substance: PACLITAXEL
     Indication: Breast cancer

REACTIONS (2)
  - Septic shock [Unknown]
  - Uveitis [Recovering/Resolving]

NARRATIVE: CASE EVENT DATE: 20241201
